FAERS Safety Report 4918961-0 (Version None)
Quarter: 2006Q1

REPORT INFORMATION
  Report Type: 
  Country: None (occurrence: None)
  Receive Date: 20060222
  Receipt Date: 20060211
  Transmission Date: 20060701
  Serious: Yes (Other)
  Sender: FDA-Public Use
  Company Number: GB-GLAXOSMITHKLINE-B0410966A

PATIENT
  Age: 76 Year
  Sex: Male

DRUGS (6)
  1. BECLOMETHASONE DIPROPIONATE [Suspect]
     Dosage: 250MCG PER DAY
     Dates: start: 20051208, end: 20051228
  2. TOLBUTAMIDE [Concomitant]
  3. AMLODIPINE [Concomitant]
     Route: 065
  4. ENALAPRIL [Concomitant]
     Route: 065
  5. ASPIRIN [Concomitant]
     Route: 065
  6. SIMVASTATIN [Concomitant]
     Route: 065

REACTIONS (4)
  - CANDIDIASIS [None]
  - DYSPNOEA [None]
  - GASTROOESOPHAGEAL REFLUX DISEASE [None]
  - MOUTH ULCERATION [None]
